FAERS Safety Report 4469211-3 (Version None)
Quarter: 2004Q4

REPORT INFORMATION
  Report Type: 
  Country: None (occurrence: None)
  Receive Date: 20041006
  Receipt Date: 20040920
  Transmission Date: 20050328
  Serious: Yes (Hospitalization)
  Sender: FDA-Public Use
  Company Number: 2004GB02259

PATIENT
  Age: 57 Year
  Sex: 0

DRUGS (1)
  1. LISINOPRIL [Suspect]
     Indication: HYPERTENSION
     Dosage: 10 MG DAILY PO
     Route: 048
     Dates: start: 20040201

REACTIONS (3)
  - ANGIONEUROTIC OEDEMA [None]
  - DROOLING [None]
  - RESPIRATORY DISTRESS [None]
